FAERS Safety Report 4265899-0 (Version None)
Quarter: 2004Q1

REPORT INFORMATION
  Report Type: 
  Country: None (occurrence: None)
  Receive Date: 20040106
  Receipt Date: 20031224
  Transmission Date: 20041129
  Serious: Yes (Hospitalization)
  Sender: FDA-Public Use
  Company Number: US-JNJFOC-20031205288

PATIENT
  Age: 39 Year
  Sex: Male

DRUGS (15)
  1. INFLIXIMAB (INFLIXIMAB, RECOMBINANT) LYOPHILIZED POWDER [Suspect]
     Indication: RHEUMATOID ARTHRITIS
     Dosage: INTRAVENOUS; INTRAVENOUS
     Route: 042
     Dates: start: 20010131
  2. INFLIXIMAB (INFLIXIMAB, RECOMBINANT) LYOPHILIZED POWDER [Suspect]
     Indication: RHEUMATOID ARTHRITIS
     Dosage: INTRAVENOUS; INTRAVENOUS
     Route: 042
     Dates: start: 20011001
  3. PREDNISONE [Concomitant]
  4. ACTONEL [Concomitant]
  5. METFORMIN HCL [Concomitant]
  6. LIPITOR [Concomitant]
  7. PRILOSEC [Concomitant]
  8. ARAVA [Concomitant]
  9. OXYCODONE HCL [Concomitant]
  10. OXYCONTIN [Concomitant]
  11. OSCAL (CALCIUM CARBONATE) [Concomitant]
  12. ASPIRIN [Concomitant]
  13. TOPROL-XL [Concomitant]
  14. ALTACE [Concomitant]
  15. GLYBURIDE [Concomitant]

REACTIONS (3)
  - BLOOD POTASSIUM DECREASED [None]
  - DIARRHOEA [None]
  - VOMITING [None]
